FAERS Safety Report 26181854 (Version 2)
Quarter: 2025Q4

REPORT INFORMATION
  Report Type: Report from Study
  Country: IN (occurrence: IN)
  Receive Date: 20251221
  Receipt Date: 20251223
  Transmission Date: 20260117
  Serious: Yes (Other)
  Sender: ROCHE
  Company Number: IN-ROCHE-10000384841

PATIENT
  Age: 37 Year
  Sex: Female

DRUGS (6)
  1. PHESGO [Suspect]
     Active Substance: HYALURONIDASE-ZZXF\PERTUZUMAB\TRASTUZUMAB
     Indication: HER2 positive breast cancer
     Route: 058
  2. DOCETAXEL [Concomitant]
     Active Substance: DOCETAXEL
  3. CARBOPLATIN [Concomitant]
     Active Substance: CARBOPLATIN
  4. LOPERAMIDE [Concomitant]
     Active Substance: LOPERAMIDE
  5. PALZEN [Concomitant]
  6. PACLITAXEL [Concomitant]
     Active Substance: PACLITAXEL

REACTIONS (3)
  - Off label use [Unknown]
  - No adverse event [Unknown]
  - Disease progression [Unknown]

NARRATIVE: CASE EVENT DATE: 20250726
